FAERS Safety Report 23606008 (Version 1)
Quarter: 2024Q1

REPORT INFORMATION
  Report Type: Spontaneous
  Country: US (occurrence: US)
  Receive Date: 20240307
  Receipt Date: 20240307
  Transmission Date: 20240409
  Serious: Yes (Hospitalization)
  Sender: FDA-Public Use
  Company Number: US-INCYTE CORPORATION-2024IN002354

PATIENT

DRUGS (24)
  1. JAKAFI [Suspect]
     Active Substance: RUXOLITINIB
     Indication: Myelofibrosis
     Dosage: 20 MILLIGRAM, BID
     Route: 048
     Dates: start: 2022, end: 20240217
  2. JAKAFI [Suspect]
     Active Substance: RUXOLITINIB
     Dosage: 20 MILLIGRAM, QD
     Route: 048
     Dates: start: 20240218, end: 20240224
  3. HYDREA [Concomitant]
     Active Substance: HYDROXYUREA
     Indication: Polycythaemia vera
     Dosage: 500 MILLIGRAM, QD
     Route: 048
     Dates: start: 2015
  4. HYDREA [Concomitant]
     Active Substance: HYDROXYUREA
     Indication: Myelofibrosis
  5. MYRBETRIQ [Concomitant]
     Active Substance: MIRABEGRON
     Indication: Benign prostatic hyperplasia
     Dosage: 50 MILLIGRAM, QD
     Route: 048
     Dates: start: 2019
  6. SANCTURA [Concomitant]
     Active Substance: TROSPIUM CHLORIDE
     Indication: Benign prostatic hyperplasia
     Dosage: 20 MILLIGRAM, BID
     Route: 048
     Dates: start: 2022
  7. PROSCAR [Concomitant]
     Active Substance: FINASTERIDE
     Indication: Benign prostatic hyperplasia
     Dosage: 5 MILLIGRAM, QD
     Route: 048
     Dates: start: 2017
  8. TAVNEOS [Concomitant]
     Active Substance: AVACOPAN
     Indication: Granulomatosis with polyangiitis
     Dosage: 3X10 MILLIGRAM, BID
     Route: 048
     Dates: start: 202205
  9. LOPROX [Concomitant]
     Active Substance: CICLOPIROX\CICLOPIROX OLAMINE
     Indication: Onychomycosis
     Dosage: UNK, BID FOR AT LEAST 6 MONTHS
     Route: 061
     Dates: start: 20210422
  10. NIZORAL [Concomitant]
     Active Substance: KETOCONAZOLE
     Indication: Rash
     Dosage: UNK, BID FOR 2 WEEKS THEN ONCE WEEKLY
     Route: 061
     Dates: start: 20231016
  11. KENALOG [Concomitant]
     Active Substance: TRIAMCINOLONE ACETONIDE
     Indication: Rash
     Dosage: UNK, TWICE DAILY AS NEEDED 2 WEEKS OON 1 WEEK OFF
     Route: 061
     Dates: start: 202309
  12. CELLCEPT [Concomitant]
     Active Substance: MYCOPHENOLATE MOFETIL
     Indication: Granulomatosis with polyangiitis
     Dosage: 500 MILLIGRAM, BID
     Route: 048
     Dates: start: 2017
  13. BACTRIM DS [Concomitant]
     Active Substance: SULFAMETHOXAZOLE\TRIMETHOPRIM
     Indication: Prophylaxis
     Dosage: 800-160MG, 1 TABLET MON/WED/FRIDAYS
     Route: 065
     Dates: start: 2016
  14. DELTASONE [Concomitant]
     Active Substance: PREDNISONE
     Indication: Granulomatosis with polyangiitis
     Dosage: 5 X1MG TABLET IN THE MORNING AND 1-2 TABLETS IN THE AFTERNOON
     Route: 065
     Dates: start: 2017
  15. NEURONTIN [Concomitant]
     Active Substance: GABAPENTIN
     Indication: Post herpetic neuralgia
     Dosage: 300 MILLIGRAM
     Route: 048
     Dates: start: 2016
  16. VALTREX [Concomitant]
     Active Substance: VALACYCLOVIR HYDROCHLORIDE
     Indication: Herpes zoster
     Dosage: 500 MILLIGRAM
     Route: 048
     Dates: start: 2016
  17. XARELTO [Concomitant]
     Active Substance: RIVAROXABAN
     Indication: Anticoagulant therapy
     Dosage: 20 MILLIGRAM, QD
     Route: 048
     Dates: start: 2016
  18. VITAMIN B6 [Concomitant]
     Active Substance: PYRIDOXINE HYDROCHLORIDE
     Indication: Supplementation therapy
     Dosage: 25 MILLIGRAM, BID
     Route: 048
     Dates: start: 201903
  19. MELATONIN [Concomitant]
     Active Substance: MELATONIN
     Indication: Sleep disorder therapy
     Dosage: 10 MILLIGRAM, QD
     Route: 048
     Dates: start: 2019
  20. ALPHA LIPOIC ACID [Concomitant]
     Active Substance: .ALPHA.-LIPOIC ACID
     Indication: Inflammation
     Dosage: 100 MILLIGRAM, QD
     Route: 048
     Dates: start: 2019
  21. CRANBERRY [Concomitant]
     Active Substance: CRANBERRY
     Indication: Renal disorder
     Dosage: UNK, QD
     Route: 048
     Dates: start: 2019
  22. CALCIUM CITRATE [Concomitant]
     Active Substance: CALCIUM CITRATE
     Indication: Supplementation therapy
     Dosage: UNK, QD
     Route: 048
     Dates: start: 2019
  23. OMEGA-3 FATTY ACIDS [Concomitant]
     Active Substance: OMEGA-3 FATTY ACIDS
     Indication: Supplementation therapy
     Dosage: 300 MILLIGRAM, QD
     Route: 048
     Dates: start: 2019
  24. HUMAN IMMUNOGLOBULIN G [Concomitant]
     Active Substance: HUMAN IMMUNOGLOBULIN G
     Indication: Hypogammaglobulinaemia
     Dosage: UNK, EVERY OTHER MONTH
     Route: 042
     Dates: start: 20200213

REACTIONS (3)
  - Pyrexia [Unknown]
  - Fall [Unknown]
  - Fatigue [Unknown]

NARRATIVE: CASE EVENT DATE: 20240227
